FAERS Safety Report 9415099 (Version 1)
Quarter: 2013Q3

REPORT INFORMATION
  Report Type: Spontaneous
  Country: FR (occurrence: FR)
  Receive Date: 20130723
  Receipt Date: 20130723
  Transmission Date: 20140515
  Serious: Yes (Hospitalization)
  Sender: FDA-Public Use
  Company Number: FR-ASTRAZENECA-2013SE52576

PATIENT
  Age: 48 Year
  Sex: Female
  Weight: 46 kg

DRUGS (5)
  1. CRESTOR [Suspect]
     Indication: HYPERCHOLESTEROLAEMIA
     Route: 048
     Dates: start: 20130619, end: 20130701
  2. DALACINE [Suspect]
     Indication: EXTREMITY NECROSIS
     Route: 048
     Dates: start: 20130619, end: 20130701
  3. CALCIPARINE [Suspect]
     Indication: THROMBOSIS PROPHYLAXIS
     Route: 058
     Dates: start: 20130620, end: 20130701
  4. EUPANTOL [Suspect]
     Indication: PROPHYLAXIS AGAINST GASTROINTESTINAL ULCER
     Route: 048
     Dates: start: 20130620, end: 20130630
  5. PERINDOPRIL [Concomitant]
     Dosage: LONG LASTING TREATMENT

REACTIONS (3)
  - Cholestasis [Not Recovered/Not Resolved]
  - C-reactive protein increased [Unknown]
  - Blood albumin decreased [Unknown]
